FAERS Safety Report 5701921-X (Version None)
Quarter: 2008Q2

REPORT INFORMATION
  Report Type: 
  Country: None (occurrence: None)
  Receive Date: 20080411
  Receipt Date: 20080404
  Transmission Date: 20081010
  Serious: Yes (Other)
  Sender: FDA-Public Use
  Company Number: PHHY2008JP03632

PATIENT
  Age: 77 Year
  Sex: Female
  Weight: 41 kg

DRUGS (1)
  1. ZOMETA [Suspect]
     Indication: METASTASES TO BONE
     Dosage: 4 MG/DAILY
     Dates: start: 20060731

REACTIONS (7)
  - FEELING ABNORMAL [None]
  - GINGIVAL SWELLING [None]
  - GINGIVITIS [None]
  - ORAL DISCHARGE [None]
  - ORAL DISORDER [None]
  - ORAL PAIN [None]
  - OSTEOMYELITIS [None]
